FAERS Safety Report 11694667 (Version 1)
Quarter: 2015Q4

REPORT INFORMATION
  Report Type: Spontaneous
  Country: US (occurrence: US)
  Receive Date: 20151103
  Receipt Date: 20151103
  Transmission Date: 20160304
  Serious: No
  Sender: FDA-Public Use
  Company Number: US-ABBVIE-15P-163-1461771-00

PATIENT
  Sex: Female

DRUGS (1)
  1. BIAXIN [Suspect]
     Active Substance: CLARITHROMYCIN
     Indication: PRODUCT USED FOR UNKNOWN INDICATION
     Route: 065

REACTIONS (6)
  - Pruritus [Unknown]
  - Headache [Unknown]
  - Hypersensitivity [Unknown]
  - Nervousness [Unknown]
  - Poor quality sleep [Unknown]
  - Nightmare [Unknown]
